FAERS Safety Report 6322030-5 (Version None)
Quarter: 2009Q3

REPORT INFORMATION
  Report Type: 
  Country: None (occurrence: None)
  Receive Date: 20090821
  Receipt Date: 20090821
  Transmission Date: 20100115
  Serious: Yes (Life-Threatening)
  Sender: FDA-Public Use
  Company Number: None

PATIENT
  Age: 60 Year
  Sex: Female
  Weight: 146.9654 kg

DRUGS (3)
  1. ZPAK 250 MG PFIZER [Suspect]
     Indication: SINUSITIS
     Dates: start: 20090814, end: 20090817
  2. ZPAK 250 MG PFIZER [Suspect]
     Indication: URINARY TRACT INFECTION
     Dates: start: 20090814, end: 20090817
  3. . [Concomitant]

REACTIONS (4)
  - DEPRESSION [None]
  - FEAR [None]
  - FEELING ABNORMAL [None]
  - NERVOUSNESS [None]
